FAERS Safety Report 15109384 (Version 4)
Quarter: 2018Q3

REPORT INFORMATION
  Report Type: Report from Study
  Country: IT (occurrence: IT)
  Receive Date: 20180705
  Receipt Date: 20180803
  Transmission Date: 20181010
  Serious: Yes (Other)
  Sender: FDA-Public Use
  Company Number: IT-AUROBINDO-AUR-APL-2017-37850

PATIENT
  Age: 45 Year
  Sex: Female

DRUGS (10)
  1. AMOXICILLIN. [Suspect]
     Active Substance: AMOXICILLIN
     Indication: PRODUCT USED FOR UNKNOWN INDICATION
     Dosage: UNK
     Route: 065
  2. PANACEF [Suspect]
     Active Substance: CEFACLOR
     Dosage: 5 PERCENT
     Route: 061
  3. DURACEF                            /00554701/ [Suspect]
     Active Substance: CEFADROXIL
     Indication: PRODUCT USED FOR UNKNOWN INDICATION
     Dosage: 2 MG/ML
     Route: 023
  4. KEFORAL                            /00145501/ [Suspect]
     Active Substance: CEPHALEXIN
     Dosage: UNK
     Route: 023
  5. KEFORAL                            /00145501/ [Suspect]
     Active Substance: CEPHALEXIN
     Dosage: 2 MG/ML
     Route: 023
  6. PANACEF [Suspect]
     Active Substance: CEFACLOR
     Dosage: UNK
     Route: 023
  7. KEFORAL                            /00145501/ [Suspect]
     Active Substance: CEPHALEXIN
     Indication: PRODUCT USED FOR UNKNOWN INDICATION
     Dosage: 5 %
     Route: 061
  8. PANACEF [Suspect]
     Active Substance: CEFACLOR
     Indication: PRODUCT USED FOR UNKNOWN INDICATION
     Dosage: 2MG/ML
     Route: 023
  9. DURACEF                            /00554701/ [Suspect]
     Active Substance: CEFADROXIL
     Dosage: UNK
     Route: 023
  10. DURACEF                            /00554701/ [Suspect]
     Active Substance: CEFADROXIL
     Dosage: 5 PERCENT
     Route: 061

REACTIONS (3)
  - Type IV hypersensitivity reaction [Unknown]
  - Acute generalised exanthematous pustulosis [Unknown]
  - Therapeutic product cross-reactivity [Unknown]
